FAERS Safety Report 5275579-0 (Version None)
Quarter: 2007Q1

REPORT INFORMATION
  Report Type: 
  Country: None (occurrence: None)
  Receive Date: 20061213
  Receipt Date: 20060523
  Transmission Date: 20070707
  Serious: Yes (Life-Threatening, Hospitalization)
  Sender: FDA-Public Use
  Company Number: 2006UW07492

PATIENT
  Age: 20 Year
  Sex: Female
  Weight: 75.2971 kg

DRUGS (3)
  1. SEROQUEL [Suspect]
     Dosage: 25 MG QD PO
     Route: 048
     Dates: start: 20060201
  2. EFFEXOR XR [Concomitant]
  3. ORTHO TRI-CYCLEN [Concomitant]

REACTIONS (2)
  - MANIA [None]
  - SUICIDE ATTEMPT [None]
